FAERS Safety Report 4311175-7 (Version None)
Quarter: 2004Q1

REPORT INFORMATION
  Report Type: 
  Country: None (occurrence: None)
  Receive Date: 20040302
  Receipt Date: 20040302
  Transmission Date: 20041129
  Serious: No
  Sender: FDA-Public Use
  Company Number: None

PATIENT

DRUGS (2)
  1. FENOLDOMPAM [Suspect]
     Indication: CORONARY ARTERY DISEASE
  2. FENOLDOMPAM [Suspect]
     Indication: CORONARY ARTERY SURGERY

REACTIONS (1)
  - OXYGEN SATURATION DECREASED [None]
